FAERS Safety Report 5469367-X (Version None)
Quarter: 2007Q3

REPORT INFORMATION
  Report Type: 
  Country: None (occurrence: None)
  Receive Date: 20070927
  Receipt Date: 20070919
  Transmission Date: 20080115
  Serious: Yes (Other)
  Sender: FDA-Public Use
  Company Number: TR-ELI_LILLY_AND_COMPANY-TR200708005887

PATIENT
  Age: 78 Year
  Sex: Female
  Weight: 40 kg

DRUGS (3)
  1. FORTEO [Suspect]
     Indication: OSTEOPOROSIS
     Dosage: 20 MICROGRAM
     Route: 058
     Dates: start: 20070727, end: 20070824
  2. CAL-D-VITA [Concomitant]
     Indication: OSTEOPOROSIS
     Dosage: UNK, UNKNOWN
     Route: 048
     Dates: start: 20070727, end: 20070824
  3. PARACETAMOL [Concomitant]
     Indication: OSTEOARTHRITIS
     Dosage: UNK, AS NEEDED
     Route: 065

REACTIONS (2)
  - ECZEMA [None]
  - RASH PAPULAR [None]
